FAERS Safety Report 16362645 (Version 1)
Quarter: 2019Q2

REPORT INFORMATION
  Report Type: Spontaneous
  Country: US (occurrence: US)
  Receive Date: 20190419
  Receipt Date: 20190419
  Transmission Date: 20190711
  Serious: Yes (Other)
  Sender: FDA-Public Use
  Company Number: None

PATIENT
  Age: 64 Year
  Sex: Female

DRUGS (19)
  1. INSULIN NPH HULLAN [Concomitant]
  2. OPROLOL [Concomitant]
  3. LETAIRIS [Suspect]
     Active Substance: AMBRISENTAN
     Indication: PULMONARY ARTERIAL HYPERTENSION
     Route: 048
     Dates: start: 201410
  4. NEPHRO-VILE [Concomitant]
  5. MIRALAX [Concomitant]
     Active Substance: POLYETHYLENE GLYCOL 3350
  6. MUP ??? [Concomitant]
  7. ALLOPURINOL. [Concomitant]
     Active Substance: ALLOPURINOL
  8. GLIMEPIRIDE. [Concomitant]
     Active Substance: GLIMEPIRIDE
  9. METFORMIN [Concomitant]
     Active Substance: METFORMIN HYDROCHLORIDE
  10. LAELULOSE ?? [Concomitant]
  11. INSULIN  XXX XXX [Concomitant]
  12. MELOLAZONE [Concomitant]
  13. FUROSEMIDE. [Concomitant]
     Active Substance: FUROSEMIDE
  14. TRIANEINOLONE TOP CREAM [Concomitant]
  15. ATORVASTATIN [Concomitant]
     Active Substance: ATORVASTATIN
  16. DIGOXIN. [Concomitant]
     Active Substance: DIGOXIN
  17. SPIRONOLACLONE [Concomitant]
  18. ZOLPIDEM [Concomitant]
     Active Substance: ZOLPIDEM\ZOLPIDEM TARTRATE
  19. FLUOXELINE [Concomitant]

REACTIONS (2)
  - Productive cough [None]
  - Dyspnoea [None]

NARRATIVE: CASE EVENT DATE: 20190415
